FAERS Safety Report 9153924 (Version 1)
Quarter: 2013Q1

REPORT INFORMATION
  Report Type: Spontaneous
  Country: US (occurrence: None)
  Receive Date: 20130306
  Receipt Date: 20130306
  Transmission Date: 20140127
  Serious: Yes (Other)
  Sender: FDA-Public Use
  Company Number: None

PATIENT
  Age: 24 Year
  Sex: Female
  Weight: 72.58 kg

DRUGS (1)
  1. METRONIDAZOLE 500 MG / 100 ML INTRAVENOUS INFUSION [Suspect]
     Indication: VAGINITIS BACTERIAL
     Dosage: 1 TAB TWICE A DAY PO
     Route: 048

REACTIONS (3)
  - Oral herpes [None]
  - Paraesthesia [None]
  - Impaired healing [None]
